APPROVED DRUG PRODUCT: ZILEUTON
Active Ingredient: ZILEUTON
Strength: 600MG
Dosage Form/Route: TABLET, EXTENDED RELEASE;ORAL
Application: A212670 | Product #001 | TE Code: AB
Applicant: STRIDES PHARMA INTERNATIONAL AG
Approved: Dec 16, 2019 | RLD: No | RS: No | Type: RX